FAERS Safety Report 23565612 (Version 1)
Quarter: 2024Q1

REPORT INFORMATION
  Report Type: Spontaneous
  Country: US (occurrence: US)
  Receive Date: 20240226
  Receipt Date: 20240226
  Transmission Date: 20240410
  Serious: Yes (Other)
  Sender: FDA-Public Use
  Company Number: US-BRISTOL-MYERS SQUIBB COMPANY-2024-028107

PATIENT
  Age: 77 Year
  Sex: Female
  Weight: 68.04 kg

DRUGS (1)
  1. REVLIMID [Suspect]
     Active Substance: LENALIDOMIDE
     Indication: Plasma cell myeloma
     Dosage: TAKE 1 CAPSULE BY MOUTH ONCE DAILY FOR 14 DAYS ON AND 7 DAYS OFF
     Route: 048

REACTIONS (4)
  - Hallucination [Recovering/Resolving]
  - Balance disorder [Recovering/Resolving]
  - Hand-eye coordination impaired [Recovering/Resolving]
  - Off label use [Unknown]

NARRATIVE: CASE EVENT DATE: 20240212
